FAERS Safety Report 16898486 (Version 1)
Quarter: 2019Q4

REPORT INFORMATION
  Report Type: Spontaneous
  Country: US (occurrence: US)
  Receive Date: 20191009
  Receipt Date: 20191009
  Transmission Date: 20200122
  Serious: Yes (Death, Other)
  Sender: FDA-Public Use
  Company Number: US-KYOWAKIRIN-2019BKK015406

PATIENT

DRUGS (1)
  1. POTELIGEO [Suspect]
     Active Substance: MOGAMULIZUMAB-KPKC
     Indication: ADULT T-CELL LYMPHOMA/LEUKAEMIA
     Dosage: UNKNOWN
     Route: 065

REACTIONS (4)
  - Infusion related reaction [Unknown]
  - Disease progression [Fatal]
  - Cardiomyopathy [Unknown]
  - Ejection fraction decreased [Unknown]
